FAERS Safety Report 6050512-2 (Version None)
Quarter: 2009Q1

REPORT INFORMATION
  Report Type: 
  Country: None (occurrence: None)
  Receive Date: 20090126
  Receipt Date: 20090121
  Transmission Date: 20090719
  Serious: Yes (Hospitalization)
  Sender: FDA-Public Use
  Company Number: PHBS2009NL00557

PATIENT
  Age: 28 Year
  Sex: Female

DRUGS (1)
  1. OXYTOCIN [Suspect]
     Indication: INDUCED LABOUR

REACTIONS (6)
  - ARRESTED LABOUR [None]
  - ARTIFICIAL RUPTURE OF MEMBRANES [None]
  - CAESAREAN SECTION [None]
  - DRUG EXPOSURE DURING PREGNANCY [None]
  - NORMAL NEWBORN [None]
  - PREMATURE SEPARATION OF PLACENTA [None]
